FAERS Safety Report 10097988 (Version 3)
Quarter: 2014Q4

REPORT INFORMATION
  Report Type: Spontaneous
  Country: US (occurrence: US)
  Receive Date: 20140423
  Receipt Date: 20141211
  Transmission Date: 20150528
  Serious: Yes (Hospitalization, Other)
  Sender: FDA-Public Use
  Company Number: US-009507513-1404USA010800

PATIENT
  Age: 25 Year
  Sex: Female
  Weight: 110.66 kg

DRUGS (1)
  1. NEXPLANON [Suspect]
     Active Substance: ETONOGESTREL
     Indication: CONTRACEPTION
     Dosage: UNK
     Route: 059
     Dates: start: 20130502, end: 20140221

REACTIONS (6)
  - Blood pressure systolic inspiratory decreased [Unknown]
  - Depression [Unknown]
  - Female sterilisation [Unknown]
  - Chest pain [Unknown]
  - Unintended pregnancy [Recovered/Resolved]
  - Placenta praevia [Recovered/Resolved]

NARRATIVE: CASE EVENT DATE: 2014
